FAERS Safety Report 6429272-9 (Version None)
Quarter: 2009Q4

REPORT INFORMATION
  Report Type: 
  Country: None (occurrence: None)
  Receive Date: 20091105
  Receipt Date: 20091028
  Transmission Date: 20100525
  Serious: Yes (Other)
  Sender: FDA-Public Use
  Company Number: PHHY2009JP47222

PATIENT
  Sex: Male
  Weight: 65 kg

DRUGS (17)
  1. COMTAN CMT+TAB [Suspect]
     Indication: DRUG EFFECT DECREASED
     Dosage: 400 MG DAILY
     Route: 048
     Dates: start: 20090129, end: 20090418
  2. COMTAN CMT+TAB [Suspect]
     Dosage: 300 MG DAILY
     Route: 048
     Dates: start: 20090419
  3. COMTAN CMT+TAB [Suspect]
     Dosage: 400 MG DAILY
     Route: 048
     Dates: start: 20090522
  4. MADOPAR [Suspect]
     Indication: PARKINSON'S DISEASE
     Dosage: 400 MG DAILY
     Route: 048
     Dates: start: 20070325, end: 20090418
  5. MADOPAR [Suspect]
     Dosage: 300 MG DALY
     Route: 048
     Dates: start: 20090419, end: 20090523
  6. MADOPAR [Suspect]
     Dosage: 400 MG DAILY
     Route: 048
     Dates: start: 20090524
  7. CABERGOLINE [Concomitant]
     Indication: PARKINSON'S DISEASE
     Dosage: 2 MG
     Route: 048
  8. PRAMIPEXOLE [Concomitant]
     Indication: PARKINSON'S DISEASE
     Dosage: 1.5 MG
  9. ROPINIROLE HYDROCHLORIDE [Concomitant]
     Indication: PARKINSON'S DISEASE
     Dosage: 9 MG
     Route: 048
  10. SYMMETREL [Concomitant]
     Indication: PARKINSON'S DISEASE
     Dosage: 100 MG
     Route: 048
  11. VOLTAREN [Concomitant]
     Dosage: 25 MG
     Route: 054
     Dates: start: 20090128
  12. RIVOTRIL [Concomitant]
     Dosage: 1 MG
     Route: 048
     Dates: start: 20090128
  13. LASIX [Concomitant]
     Dosage: 20 MG
     Route: 048
     Dates: start: 20090128, end: 20090523
  14. ALDACTONE [Concomitant]
     Dosage: 25 MG
     Route: 048
     Dates: start: 20090128
  15. GASMOTIN [Concomitant]
     Dosage: 15 MG
     Route: 048
     Dates: start: 20090128
  16. PARIET [Concomitant]
     Dosage: 10 MG
     Route: 048
     Dates: start: 20090128
  17. URIEF [Concomitant]
     Dosage: 8 MG
     Route: 048
     Dates: start: 20090128

REACTIONS (4)
  - AGGRESSION [None]
  - AGITATION [None]
  - DECREASED APPETITE [None]
  - DELUSION [None]
